FAERS Safety Report 5239741-5 (Version None)
Quarter: 2007Q1

REPORT INFORMATION
  Report Type: 
  Country: None (occurrence: None)
  Receive Date: 20070214
  Receipt Date: 20070214
  Transmission Date: 20070707
  Serious: Yes (Hospitalization)
  Sender: FDA-Public Use
  Company Number: None

PATIENT
  Age: 15 Month
  Sex: Male
  Weight: 10.8863 kg

DRUGS (3)
  1. INVANZ [Suspect]
     Indication: BACTERIAL INFECTION
     Dosage: 150 MG EVERY 12 HOURS IM
     Route: 030
     Dates: start: 20070205, end: 20070206
  2. INVANZ [Suspect]
     Indication: PERIRECTAL ABSCESS
     Dosage: 150 MG EVERY 12 HOURS IM
     Route: 030
     Dates: start: 20070205, end: 20070206
  3. INVANZ [Suspect]
     Indication: STREPTOCOCCAL INFECTION
     Dosage: 150 MG EVERY 12 HOURS IM
     Route: 030
     Dates: start: 20070205, end: 20070206

REACTIONS (2)
  - INCORRECT DOSE ADMINISTERED [None]
  - MEDICATION ERROR [None]
